FAERS Safety Report 7647888-9 (Version None)
Quarter: 2011Q3

REPORT INFORMATION
  Report Type: 
  Country: None (occurrence: None)
  Receive Date: 20110801
  Receipt Date: 20110602
  Transmission Date: 20111222
  Serious: No
  Sender: FDA-Public Use
  Company Number: US-ABBOTT-11P-163-0804633-00

PATIENT
  Age: 13 Week
  Sex: Male

DRUGS (2)
  1. PANCREATIN TRIPLE STRENGTH CAP [Suspect]
     Indication: CYSTIC FIBROSIS
     Dosage: DAILY DOSE:  UNKNOWN
     Route: 065
     Dates: start: 20110301
  2. RANITIDINE HYDROCHLORIDE [Concomitant]
     Indication: PRODUCT USED FOR UNKNOWN INDICATION
     Dosage: DAILY DOSE:  UNKNOWN
     Route: 065

REACTIONS (1)
  - URTICARIA [None]
